FAERS Safety Report 6585855-7 (Version None)
Quarter: 2010Q1

REPORT INFORMATION
  Report Type: 
  Country: None (occurrence: None)
  Receive Date: 20100217
  Receipt Date: 20100205
  Transmission Date: 20100710
  Serious: Yes (Other)
  Sender: FDA-Public Use
  Company Number: PHHY2010GR06425

PATIENT

DRUGS (2)
  1. TEGRETOL [Suspect]
     Indication: BACK PAIN
     Dosage: 200 MG
     Dates: start: 20050101
  2. TEGRETOL [Suspect]
     Indication: OFF LABEL USE

REACTIONS (5)
  - DIPLOPIA [None]
  - GAIT DISTURBANCE [None]
  - MULTIPLE SCLEROSIS [None]
  - PARESIS [None]
  - SPEECH DISORDER [None]
